FAERS Safety Report 15811863 (Version 2)
Quarter: 2019Q1

REPORT INFORMATION
  Report Type: Spontaneous
  Country: GB (occurrence: GB)
  Receive Date: 20190111
  Receipt Date: 20190111
  Transmission Date: 20190417
  Serious: Yes (Death, Life-Threatening, Hospitalization)
  Sender: FDA-Public Use
  Company Number: PHHY2019GB004591

PATIENT
  Age: 66 Year
  Sex: Male

DRUGS (7)
  1. ZOCOR [Interacting]
     Active Substance: SIMVASTATIN
     Indication: PRODUCT USED FOR UNKNOWN INDICATION
     Dosage: 30 MG, QD
     Route: 048
  2. CICLOSPORIN [Suspect]
     Active Substance: CYCLOSPORINE
     Indication: PRODUCT USED FOR UNKNOWN INDICATION
     Dosage: 150 MG
     Route: 065
  3. COLCHICINE. [Interacting]
     Active Substance: COLCHICINE
     Indication: GOUT
     Dosage: 1.2 MG
     Route: 065
  4. METICORTEN [Interacting]
     Active Substance: PREDNISONE
     Indication: PRODUCT USED FOR UNKNOWN INDICATION
     Dosage: 7.5 MG
     Route: 065
  5. INSULIN [Concomitant]
     Active Substance: INSULIN NOS
     Indication: DIABETES MELLITUS
     Route: 065
  6. MYCOPHENOLATE SODIUM [Concomitant]
     Active Substance: MYCOPHENOLATE SODIUM
     Indication: GOUT
     Dosage: 500 MG
     Route: 065
  7. ZOCOR [Interacting]
     Active Substance: SIMVASTATIN
     Dosage: 60 MG, QD
     Route: 048

REACTIONS (4)
  - Rhabdomyolysis [Fatal]
  - Myopathy toxic [Fatal]
  - Drug interaction [Fatal]
  - Pneumonia [Fatal]
